FAERS Safety Report 9290600 (Version 2)
Quarter: 2013Q3

REPORT INFORMATION
  Report Type: Report from Study
  Country: CA (occurrence: CA)
  Receive Date: 20130515
  Receipt Date: 20130717
  Transmission Date: 20140515
  Serious: Yes (Hospitalization)
  Sender: FDA-Public Use
  Company Number: CA-JNJFOC-20130508184

PATIENT
  Age: 81 Year
  Sex: Male
  Weight: 77 kg

DRUGS (9)
  1. REMICADE [Suspect]
     Indication: CROHN^S DISEASE
     Route: 042
     Dates: start: 20111228
  2. REMICADE [Suspect]
     Indication: CROHN^S DISEASE
     Route: 042
     Dates: start: 201111
  3. SPIRIVA [Concomitant]
     Route: 065
  4. FUROSEMIDE [Concomitant]
     Route: 065
  5. METOPROLOL [Concomitant]
     Route: 065
  6. ZYMAR [Concomitant]
     Route: 065
  7. GARASONE [Concomitant]
     Route: 065
  8. ADVAIR DISKUS [Concomitant]
     Route: 065
  9. GENTAMICIN [Concomitant]
     Route: 065

REACTIONS (3)
  - Dyspnoea [Unknown]
  - Chills [Unknown]
  - Abdominal pain [Unknown]
